FAERS Safety Report 5709497-8 (Version None)
Quarter: 2008Q2

REPORT INFORMATION
  Report Type: 
  Country: None (occurrence: None)
  Receive Date: 20080417
  Receipt Date: 20080417
  Transmission Date: 20081010
  Serious: Yes (Other)
  Sender: FDA-Public Use
  Company Number: None

PATIENT
  Sex: Female
  Weight: 62.5964 kg

DRUGS (12)
  1. CIPROFLOXACIN [Suspect]
     Indication: GASTRITIS BACTERIAL
     Dosage: MG 500 BID PO
     Route: 048
     Dates: start: 20010108
  2. CIPROFLOXACIN [Suspect]
     Indication: URINARY TRACT INFECTION
     Dosage: MG 500 BID PO
     Route: 048
     Dates: start: 20010108
  3. CIPROFLOXACIN [Suspect]
     Indication: GASTRITIS BACTERIAL
     Dosage: MG 500 BID PO
     Route: 048
     Dates: start: 20060115
  4. CIPROFLOXACIN [Suspect]
     Indication: URINARY TRACT INFECTION
     Dosage: MG 500 BID PO
     Route: 048
     Dates: start: 20060115
  5. CIPROFLOXACIN [Suspect]
     Indication: GASTRITIS BACTERIAL
     Dosage: MG 500 BID PO
     Route: 048
     Dates: start: 20011121
  6. CIPROFLOXACIN [Suspect]
     Indication: URINARY TRACT INFECTION
     Dosage: MG 500 BID PO
     Route: 048
     Dates: start: 20011121
  7. CIPROFLOXACIN [Suspect]
     Indication: GASTRITIS BACTERIAL
     Dosage: MG 500 BID PO
     Route: 048
     Dates: start: 19951101
  8. CIPROFLOXACIN [Suspect]
     Indication: URINARY TRACT INFECTION
     Dosage: MG 500 BID PO
     Route: 048
     Dates: start: 19951101
  9. CIPROFLOXACIN [Suspect]
     Indication: GASTRITIS BACTERIAL
     Dosage: MG 500 BID PO
     Route: 048
     Dates: start: 20030601
  10. CIPROFLOXACIN [Suspect]
     Indication: URINARY TRACT INFECTION
     Dosage: MG 500 BID PO
     Route: 048
     Dates: start: 20030601
  11. CIPROFLOXACIN [Suspect]
     Indication: GASTRITIS BACTERIAL
     Dosage: MG 500 BID PO
     Route: 048
     Dates: start: 19970104
  12. CIPROFLOXACIN [Suspect]
     Indication: URINARY TRACT INFECTION
     Dosage: MG 500 BID PO
     Route: 048
     Dates: start: 19970104

REACTIONS (1)
  - DRUG HYPERSENSITIVITY [None]
